FAERS Safety Report 23274159 (Version 1)
Quarter: 2023Q4

REPORT INFORMATION
  Report Type: Spontaneous
  Country: MX (occurrence: MX)
  Receive Date: 20231208
  Receipt Date: 20231208
  Transmission Date: 20240109
  Serious: Yes (Hospitalization, Other)
  Sender: FDA-Public Use
  Company Number: MX-NOVOPROD-1147734

PATIENT
  Sex: Male

DRUGS (1)
  1. RYBELSUS [Suspect]
     Active Substance: SEMAGLUTIDE
     Indication: Obesity
     Dosage: 3 MG (PRODUCT START AND STOP DATE BOTH REPORTED AS: ^A FEW WEEKS AGO^)
     Route: 048

REACTIONS (2)
  - Intestinal obstruction [Unknown]
  - Product use in unapproved indication [Unknown]
